FAERS Safety Report 14951631 (Version 1)
Quarter: 2018Q2

REPORT INFORMATION
  Report Type: Report from Study
  Country: JP (occurrence: JP)
  Receive Date: 20180530
  Receipt Date: 20180530
  Transmission Date: 20180711
  Serious: Yes (Hospitalization)
  Sender: FDA-Public Use
  Company Number: JP-SA-2018SA121918

PATIENT
  Age: 71 Year
  Sex: Male
  Weight: 52 kg

DRUGS (9)
  1. ADOAIR [Suspect]
     Active Substance: FLUTICASONE PROPIONATE\SALMETEROL XINAFOATE
     Route: 055
     Dates: start: 20150316
  2. KARY UNI [PIRENOXINE] [Concomitant]
     Indication: CATARACT
     Route: 047
     Dates: start: 2009
  3. ONON [Concomitant]
     Active Substance: PRANLUKAST
     Indication: RHINITIS ALLERGIC
     Dosage: 450 MG, QD
     Route: 048
     Dates: start: 20121120, end: 20180111
  4. ALLERMIST [Concomitant]
     Active Substance: FLUTICASONE FUROATE
     Indication: RHINITIS ALLERGIC
     Dosage: 110 MG, QD
     Route: 045
     Dates: start: 20140418, end: 20180111
  5. DUPILUMAB [Suspect]
     Active Substance: DUPILUMAB
     Indication: ASTHMA
     Dosage: 300 MG, BID
     Route: 058
     Dates: start: 20150316, end: 20150316
  6. DUPILUMAB [Suspect]
     Active Substance: DUPILUMAB
     Dosage: 300 MG, QOW
     Route: 058
     Dates: start: 20150330, end: 20170105
  7. AZUNOL [SODIUM GUALENATE] [Concomitant]
     Indication: PROPHYLAXIS
     Dosage: AZUNOL GARGLE LIQUID 4%
     Route: 061
     Dates: start: 20150928, end: 20180308
  8. SULTANOL [Suspect]
     Active Substance: ALBUTEROL SULFATE
     Indication: ASTHMA
     Dosage: DOSE:8 PUFF(S)
     Route: 055
     Dates: start: 20140924
  9. ADOAIR [Suspect]
     Active Substance: FLUTICASONE PROPIONATE\SALMETEROL XINAFOATE
     Indication: ASTHMA
     Dosage: 250 MG, BID
     Route: 055
     Dates: start: 20121015, end: 20150315

REACTIONS (1)
  - Eosinophilic granulomatosis with polyangiitis [Not Recovered/Not Resolved]

NARRATIVE: CASE EVENT DATE: 20170814
